FAERS Safety Report 8121955-8 (Version None)
Quarter: 2012Q1

REPORT INFORMATION
  Report Type: 
  Country: None (occurrence: None)
  Receive Date: 20120208
  Receipt Date: 20120206
  Transmission Date: 20120608
  Serious: Yes (Hospitalization)
  Sender: FDA-Public Use
  Company Number: DE-ROCHE-1002788

PATIENT
  Age: 65 Year
  Sex: Male
  Weight: 70 kg

DRUGS (14)
  1. FINASTERID [Concomitant]
     Dates: start: 20101013
  2. AVASTIN [Suspect]
     Indication: GLIOBLASTOMA
     Dosage: MG, LAST DOSE OF SAE 19 OCT 2011
     Route: 042
     Dates: start: 20101117
  3. NEXIUM [Concomitant]
     Dates: start: 20101013, end: 20101102
  4. FORTECORTIN [Concomitant]
     Dates: start: 20101013
  5. FRAXIPARIN [Concomitant]
     Dates: start: 20101013
  6. ZENTROPIL [Concomitant]
     Dates: start: 20101013, end: 20101111
  7. SANDOCAL-D [Concomitant]
     Dates: start: 20101013
  8. BAYOTENSIN [Concomitant]
     Dates: start: 20110601
  9. ZANTAC [Concomitant]
     Dosage: 1/50 MG
     Dates: start: 20101201, end: 20101201
  10. CLEMASTINE FUMARATE [Concomitant]
     Dosage: 1/2 MG
     Dates: start: 20101201, end: 20101201
  11. ONDANSETRON HCL [Concomitant]
     Dates: start: 20110616
  12. IRINOTECAN HCL [Suspect]
     Indication: GLIOBLASTOMA
     Dosage: MG, LAST DOSE OF SAE: 19 OCT 2011
     Route: 042
     Dates: start: 20101219
  13. KEPPRA [Concomitant]
     Dates: start: 20101112
  14. NOVALGIN [Concomitant]
     Dates: start: 20101102

REACTIONS (2)
  - PANIC ATTACK [None]
  - GRAND MAL CONVULSION [None]
